FAERS Safety Report 9949459 (Version 1)
Quarter: 2014Q1

REPORT INFORMATION
  Report Type: Spontaneous
  Country: US (occurrence: US)
  Receive Date: 20140304
  Receipt Date: 20140304
  Transmission Date: 20141002
  Serious: No
  Sender: FDA-Public Use
  Company Number: US-BAYER-2014-032933

PATIENT
  Sex: Male

DRUGS (1)
  1. DESONATE GEL [Suspect]
     Indication: ECZEMA
     Dosage: UNK

REACTIONS (2)
  - Product physical issue [None]
  - Drug ineffective [None]
